FAERS Safety Report 9819759 (Version 2)
Quarter: 2014Q1

REPORT INFORMATION
  Report Type: Spontaneous
  Country: US (occurrence: US)
  Receive Date: 20140116
  Receipt Date: 20140204
  Transmission Date: 20141002
  Serious: No
  Sender: FDA-Public Use
  Company Number: US-009507513-1401USA005265

PATIENT
  Sex: Female
  Weight: 98.87 kg

DRUGS (3)
  1. DULERA [Suspect]
     Indication: ASTHMA
     Dosage: 2 PUFFS TWICE DAILY
     Route: 055
     Dates: start: 201307
  2. ALBUTEROL [Concomitant]
  3. SINGULAIR [Concomitant]
     Route: 048

REACTIONS (4)
  - Peak expiratory flow rate decreased [Unknown]
  - Drug dose omission [Unknown]
  - Product quality issue [Unknown]
  - No adverse event [Unknown]
